FAERS Safety Report 8854493 (Version 1)
Quarter: 2012Q4

REPORT INFORMATION
  Report Type: 
  Country: JP (occurrence: JP)
  Receive Date: 20121023
  Receipt Date: 20121023
  Transmission Date: 20130627
  Serious: Yes (Death, Other)
  Sender: FDA-Public Use
  Company Number: JP-PFIZER INC-2012258593

PATIENT
  Age: 64 Year
  Sex: Male

DRUGS (1)
  1. UNASYN-S [Suspect]
     Dosage: UNK
     Route: 041
     Dates: start: 201110, end: 201110

REACTIONS (1)
  - Stevens-Johnson syndrome [Fatal]
